FAERS Safety Report 6267340-5 (Version None)
Quarter: 2009Q3

REPORT INFORMATION
  Report Type: 
  Country: None (occurrence: None)
  Receive Date: 20090714
  Receipt Date: 20090706
  Transmission Date: 20100115
  Serious: Yes (Hospitalization, Disabling, Other)
  Sender: FDA-Public Use
  Company Number: A0795510A

PATIENT
  Age: 76 Year
  Sex: Male

DRUGS (3)
  1. COREG [Suspect]
     Indication: ATRIAL FIBRILLATION
     Route: 048
     Dates: start: 20090601, end: 20090703
  2. MICARDIS [Concomitant]
  3. WARFARIN SODIUM [Concomitant]

REACTIONS (1)
  - MANIA [None]
